FAERS Safety Report 21745929 (Version 3)
Quarter: 2023Q1

REPORT INFORMATION
  Report Type: Spontaneous
  Country: US (occurrence: US)
  Receive Date: 20221219
  Receipt Date: 20230202
  Transmission Date: 20230417
  Serious: Yes (Other)
  Sender: FDA-Public Use
  Company Number: US-GLENMARK PHARMACEUTICALS-2022GMK077069

PATIENT

DRUGS (3)
  1. VIORELE [Suspect]
     Active Substance: DESOGESTREL\ETHINYL ESTRADIOL
     Indication: Oral contraception
     Dosage: UNK
     Route: 048
  2. KARIVA [Suspect]
     Active Substance: DESOGESTREL\ETHINYL ESTRADIOL
     Indication: Oral contraception
     Dosage: UNK
     Route: 065
     Dates: end: 20221121
  3. ISOTRETINOIN [Concomitant]
     Active Substance: ISOTRETINOIN
     Indication: Product used for unknown indication
     Dosage: UNK
     Route: 065

REACTIONS (4)
  - Pregnancy on oral contraceptive [Unknown]
  - Drug ineffective [Unknown]
  - Ectopic pregnancy [Unknown]
  - Expired product administered [Unknown]

NARRATIVE: CASE EVENT DATE: 20221121
